FAERS Safety Report 5404781-X (Version None)
Quarter: 2007Q3

REPORT INFORMATION
  Report Type: 
  Country: None (occurrence: None)
  Receive Date: 20070713
  Receipt Date: 20070213
  Transmission Date: 20080115
  Serious: Yes (Hospitalization)
  Sender: FDA-Public Use
  Company Number: REM_00302_2006

PATIENT
  Age: 3 Year
  Sex: Female
  Weight: 9.4 kg

DRUGS (1)
  1. REMODULIN [Suspect]
     Indication: PULMONARY HYPERTENSION
     Dosage: 19.5 NG/KG/MIN (0.0195 UG/KG,1 IN 1 MIN),INTRAVENOUS
     Route: 042
     Dates: start: 20060220

REACTIONS (1)
  - CATHETER BACTERAEMIA [None]
